FAERS Safety Report 7512542-0 (Version None)
Quarter: 2011Q2

REPORT INFORMATION
  Report Type: 
  Country: None (occurrence: None)
  Receive Date: 20110531
  Receipt Date: 20110520
  Transmission Date: 20111010
  Serious: Yes (Hospitalization)
  Sender: FDA-Public Use
  Company Number: JP-ROCHE-777608

PATIENT
  Sex: Male
  Weight: 77 kg

DRUGS (4)
  1. XELODA [Suspect]
     Indication: LARGE INTESTINE CARCINOMA
     Route: 048
     Dates: start: 20110127, end: 20110331
  2. TRICHLORMETHIAZIDE [Concomitant]
     Route: 048
     Dates: start: 20100401
  3. AVASTIN [Suspect]
     Indication: LARGE INTESTINE CARCINOMA
     Dosage: DOSAGE IS UNCERTAIN.
     Route: 041
     Dates: start: 20100121, end: 20110106
  4. AVASTIN [Suspect]
     Dosage: DOSAGE IS UNCERTAIN.
     Route: 041
     Dates: start: 20110127, end: 20110311

REACTIONS (5)
  - ANAEMIA [None]
  - CHEST PAIN [None]
  - VENTRICULAR EXTRASYSTOLES [None]
  - CARDIOMYOPATHY [None]
  - DILATATION VENTRICULAR [None]
